FAERS Safety Report 15965124 (Version 2)
Quarter: 2019Q1

REPORT INFORMATION
  Report Type: Report from Study
  Country: US (occurrence: US)
  Receive Date: 20190215
  Receipt Date: 20190325
  Transmission Date: 20190418
  Serious: Yes (Other)
  Sender: FDA-Public Use
  Company Number: US-ROCHE-1529144

PATIENT
  Age: 42 Year
  Sex: Male

DRUGS (1)
  1. ALTEPLASE. [Suspect]
     Active Substance: ALTEPLASE
     Indication: CEREBROVASCULAR ACCIDENT
     Dosage: INTRAVENTRICULAR CATHETER, UP TO 9 DOSES OF 1.0 MG (AS PER PROTOCOL).
     Route: 050

REACTIONS (4)
  - Delayed ischaemic neurological deficit [Recovered/Resolved]
  - Intracranial pressure increased [Recovered/Resolved]
  - Clostridium difficile colitis [Recovered/Resolved]
  - Vasospasm [Recovered/Resolved]

NARRATIVE: CASE EVENT DATE: 20140501
